FAERS Safety Report 10079370 (Version 1)
Quarter: 2014Q2

REPORT INFORMATION
  Report Type: Report from Study
  Country: US (occurrence: US)
  Receive Date: 20140415
  Receipt Date: 20140415
  Transmission Date: 20141212
  Serious: Yes (Hospitalization)
  Sender: FDA-Public Use
  Company Number: PHEH2014US007261

PATIENT
  Age: 47 Year
  Sex: Male

DRUGS (1)
  1. ZORTRESS [Suspect]
     Indication: LIVER TRANSPLANT
     Dosage: 1 MG, BID
     Route: 048

REACTIONS (2)
  - Blood disorder [Unknown]
  - Complications of transplanted liver [Unknown]
